FAERS Safety Report 15677518 (Version 1)
Quarter: 2018Q4

REPORT INFORMATION
  Report Type: Report from Study
  Country: US (occurrence: US)
  Receive Date: 20181130
  Receipt Date: 20181130
  Transmission Date: 20190205
  Serious: Yes (Hospitalization, Other)
  Sender: FDA-Public Use
  Company Number: US-ELI_LILLY_AND_COMPANY-US201811013256

PATIENT
  Sex: Female

DRUGS (1)
  1. TERIPARATIDE [Suspect]
     Active Substance: TERIPARATIDE
     Indication: OSTEOPOROSIS
     Dosage: UNK, UNKNOWN
     Route: 065
     Dates: start: 20180814

REACTIONS (9)
  - Parkinson^s disease [Unknown]
  - Nausea [Unknown]
  - Renal failure [Unknown]
  - Vomiting [Unknown]
  - Pain [Unknown]
  - Nephropathy [Unknown]
  - Stress [Unknown]
  - Cardiac failure [Unknown]
  - Affect lability [Unknown]
